FAERS Safety Report 20473518 (Version 1)
Quarter: 2022Q1

REPORT INFORMATION
  Report Type: Spontaneous
  Country: US (occurrence: US)
  Receive Date: 20220215
  Receipt Date: 20220215
  Transmission Date: 20220424
  Serious: No
  Sender: FDA-Public Use
  Company Number: US-ALLERGAN-2135995US

PATIENT
  Sex: Male

DRUGS (3)
  1. TAZORAC [Suspect]
     Active Substance: TAZAROTENE
     Indication: Palmoplantar keratoderma
     Dosage: 1 QOD
     Route: 061
  2. CLONAZEPAM [Concomitant]
     Active Substance: CLONAZEPAM
  3. UNSPECIFIED INGREDIENT [Concomitant]
     Active Substance: UNSPECIFIED INGREDIENT

REACTIONS (3)
  - Off label use [Unknown]
  - Therapeutic response decreased [Unknown]
  - Therapeutic product effect delayed [Unknown]
